FAERS Safety Report 25238256 (Version 1)
Quarter: 2025Q2

REPORT INFORMATION
  Report Type: Spontaneous
  Country: US (occurrence: None)
  Receive Date: 20250424
  Receipt Date: 20250424
  Transmission Date: 20250716
  Serious: Yes (Hospitalization)
  Sender: FDA-CTU
  Company Number: None

PATIENT
  Age: 50 Year
  Sex: Female

DRUGS (1)
  1. COSENTYX [Suspect]
     Active Substance: SECUKINUMAB
     Indication: Axial spondyloarthritis
     Dosage: FREQUENCY : WEEKLY;?

REACTIONS (5)
  - Therapy interrupted [None]
  - Liver disorder [None]
  - Pancreatic disorder [None]
  - Menstruation irregular [None]
  - Hepatic atrophy [None]
